FAERS Safety Report 14816551 (Version 1)
Quarter: 2018Q2

REPORT INFORMATION
  Report Type: Spontaneous
  Country: US (occurrence: US)
  Receive Date: 20180426
  Receipt Date: 20180426
  Transmission Date: 20180711
  Serious: Yes (Other)
  Sender: FDA-Public Use
  Company Number: US-TEVA-2018-US-884209

PATIENT
  Age: 69 Year
  Sex: Female

DRUGS (2)
  1. DICLOFENAC [Suspect]
     Active Substance: DICLOFENAC
     Indication: SWELLING
  2. DICLOFENAC [Suspect]
     Active Substance: DICLOFENAC
     Indication: PAIN
     Route: 065
     Dates: start: 20180401

REACTIONS (5)
  - Abdominal pain [Unknown]
  - Headache [Unknown]
  - Rectal haemorrhage [Not Recovered/Not Resolved]
  - Delusion [Unknown]
  - Fear [Unknown]

NARRATIVE: CASE EVENT DATE: 20180401
